FAERS Safety Report 6043387-9 (Version None)
Quarter: 2009Q1

REPORT INFORMATION
  Report Type: 
  Country: None (occurrence: None)
  Receive Date: 20090115
  Receipt Date: 20090102
  Transmission Date: 20090719
  Serious: Yes (Other)
  Sender: FDA-Public Use
  Company Number: 2009-189219-NL

PATIENT
  Age: 29 Year
  Sex: Female
  Weight: 62.6 kg

DRUGS (2)
  1. IMPLANON [Suspect]
     Indication: CONTRACEPTION
     Dosage: SUBDERMAL, TRAINED PHYSICIAN
     Route: 059
     Dates: start: 20071119, end: 20081229
  2. TEGRETOL [Suspect]
     Indication: CONVULSION
     Dosage: ORAL
     Route: 048

REACTIONS (9)
  - ANXIETY [None]
  - DRUG EFFECT DECREASED [None]
  - DRUG EXPOSURE DURING PREGNANCY [None]
  - DRUG INTERACTION [None]
  - IMPLANT SITE HAEMATOMA [None]
  - POLYMENORRHOEA [None]
  - PREGNANCY WITH IMPLANT CONTRACEPTIVE [None]
  - ROAD TRAFFIC ACCIDENT [None]
  - SPINAL FRACTURE [None]
